FAERS Safety Report 4529508-5 (Version None)
Quarter: 2004Q4

REPORT INFORMATION
  Report Type: 
  Country: None (occurrence: None)
  Receive Date: 20041216
  Receipt Date: 20041201
  Transmission Date: 20050328
  Serious: Yes (Other)
  Sender: FDA-Public Use
  Company Number: 2004AL001761

PATIENT
  Sex: Female

DRUGS (1)
  1. METOCLOPRAMIDE [Suspect]
     Indication: NAUSEA
     Dosage: PO
     Route: 048
     Dates: start: 19981022, end: 20020801

REACTIONS (8)
  - DISEASE PROGRESSION [None]
  - DYSKINESIA [None]
  - DYSTONIA [None]
  - INJURY [None]
  - MENTAL DISORDER [None]
  - MUSCLE SPASMS [None]
  - NERVOUS SYSTEM DISORDER [None]
  - PAIN [None]
